FAERS Safety Report 16207574 (Version 7)
Quarter: 2019Q4

REPORT INFORMATION
  Report Type: Spontaneous
  Country: US (occurrence: US)
  Receive Date: 20190417
  Receipt Date: 20191129
  Transmission Date: 20200122
  Serious: Yes (Hospitalization)
  Sender: FDA-Public Use
  Company Number: US-PFIZER INC-2019164266

PATIENT
  Age: 70 Year
  Sex: Male
  Weight: 72.56 kg

DRUGS (4)
  1. ELIQUIS [Concomitant]
     Active Substance: APIXABAN
     Dosage: UNK
  2. TESTOSTERON [TESTOSTERONE] [Concomitant]
     Dosage: UNK
  3. GENOTROPIN [Suspect]
     Active Substance: SOMATROPIN
     Indication: GROWTH HORMONE DEFICIENCY
     Dosage: 1.6 MG, DAILY
     Route: 058
  4. GENOTROPIN [Suspect]
     Active Substance: SOMATROPIN
     Dosage: UNK (SPLIT IN HALF)
     Route: 058

REACTIONS (7)
  - Fluid retention [Unknown]
  - Intentional product use issue [Unknown]
  - Feeling abnormal [Unknown]
  - Asthenia [Unknown]
  - Facioscapulohumeral muscular dystrophy [Unknown]
  - Memory impairment [Unknown]
  - Condition aggravated [Unknown]
